FAERS Safety Report 9063628 (Version 3)
Quarter: 2013Q2

REPORT INFORMATION
  Report Type: Report from Study
  Country: JP (occurrence: JP)
  Receive Date: 20130213
  Receipt Date: 20130425
  Transmission Date: 20140414
  Serious: Yes (Other)
  Sender: FDA-Public Use
  Company Number: JP-B.I. PHARMACEUTICALS,INC./RIDGEFIELD-2013-BI-01994NB

PATIENT
  Age: 66 Year
  Sex: Male
  Weight: 71.6 kg

DRUGS (12)
  1. MICAMLO COMBINATION [Suspect]
     Indication: HYPERTENSION
     Route: 048
     Dates: start: 20111130, end: 20120409
  2. FLIVAS [Concomitant]
     Dosage: 75 MG
     Route: 048
  3. AVOLVE [Concomitant]
     Dosage: 0.5 MG
     Route: 048
  4. URSO [Concomitant]
     Dosage: 600 MG
     Route: 048
  5. AMINOLEBAN EN [Concomitant]
     Dosage: 50 G
     Route: 048
  6. OMEPRAL [Concomitant]
     Dosage: 20 MG
     Route: 048
  7. ALLOID G [Concomitant]
     Dosage: 90 ML
     Route: 048
  8. ATELEC [Concomitant]
     Indication: HYPERTENSION
     Dosage: 20 MG
     Route: 048
  9. SODIUM BICARBONATE [Concomitant]
     Dosage: 4.5 G
     Route: 048
  10. KAYEXALATE [Concomitant]
     Dosage: 19.62 G
     Route: 048
  11. ALLELOCK [Concomitant]
     Dosage: 2.5 MG
     Route: 048
  12. ALFAROL [Concomitant]
     Dosage: 0.25 MCG
     Route: 048

REACTIONS (2)
  - Hyperkalaemia [Recovered/Resolved]
  - Renal failure chronic [Recovered/Resolved]
